FAERS Safety Report 8772999 (Version 3)
Quarter: 2012Q4

REPORT INFORMATION
  Report Type: Report from Study
  Country: US (occurrence: US)
  Receive Date: 20120907
  Receipt Date: 20121227
  Transmission Date: 20130627
  Serious: Yes (Other)
  Sender: FDA-Public Use
  Company Number: US-ABBOTT-12P-163-0973221-00

PATIENT
  Sex: Female
  Weight: 119.4 kg

DRUGS (13)
  1. CITALOPRAM [Concomitant]
     Indication: DEPRESSION
  2. AMBIEN [Concomitant]
     Indication: INSOMNIA
  3. KLONOPIN [Concomitant]
     Indication: INSOMNIA
  4. HYDROCHLOROTHIAZIDE [Concomitant]
     Indication: HYPERTENSION
  5. HYDROCHLOROTHIAZIDE [Concomitant]
     Indication: FLUID RETENTION
  6. LYRICA [Concomitant]
     Indication: FIBROMYALGIA
  7. LEVBID [Concomitant]
     Indication: GASTROOESOPHAGEAL REFLUX DISEASE
  8. HUMIRA 40 MG/0.8 ML PEN [Suspect]
     Indication: PSORIATIC ARTHROPATHY
     Dates: start: 201106, end: 201206
  9. HUMIRA 40 MG/0.8 ML PEN [Suspect]
     Indication: PSORIASIS
  10. CARAFATE [Concomitant]
     Indication: GASTROOESOPHAGEAL REFLUX DISEASE
  11. PRILOSEC [Concomitant]
     Indication: GASTROOESOPHAGEAL REFLUX DISEASE
  12. VICTOZA [Concomitant]
     Indication: DIABETES MELLITUS
  13. METFORMIN [Concomitant]
     Indication: DIABETES MELLITUS

REACTIONS (22)
  - Lung disorder [Recovering/Resolving]
  - Chest pain [Recovered/Resolved]
  - Dyspnoea [Recovered/Resolved]
  - Pleural effusion [Recovered/Resolved]
  - Chest pain [Recovered/Resolved]
  - Pleural effusion [Recovering/Resolving]
  - Cough [Recovering/Resolving]
  - Psoriatic arthropathy [Recovering/Resolving]
  - Chills [Recovering/Resolving]
  - Fatigue [Recovering/Resolving]
  - Night sweats [Recovering/Resolving]
  - Rash papular [Recovering/Resolving]
  - Psoriasis [Recovering/Resolving]
  - Cardiac disorder [Recovering/Resolving]
  - Musculoskeletal chest pain [Recovered/Resolved]
  - Laboratory test abnormal [Recovering/Resolving]
  - Laboratory test abnormal [Recovering/Resolving]
  - Tuberculin test positive [Recovering/Resolving]
  - Fatigue [Recovering/Resolving]
  - Pruritus [Recovering/Resolving]
  - Dermatitis psoriasiform [Recovering/Resolving]
  - Infection [Unknown]
